FAERS Safety Report 20298552 (Version 1)
Quarter: 2022Q1

REPORT INFORMATION
  Report Type: Spontaneous
  Country: US (occurrence: None)
  Receive Date: 20220104
  Receipt Date: 20220104
  Transmission Date: 20220423
  Serious: Yes (Hospitalization)
  Sender: FDA-Public Use
  Company Number: None

PATIENT
  Age: 69 Year
  Sex: Male
  Weight: 89.81 kg

DRUGS (1)
  1. TRAMADOL HYDROCHLORIDE [Suspect]
     Active Substance: TRAMADOL HYDROCHLORIDE
     Indication: Pain
     Dosage: FREQUENCY : AS NEEDED;?
     Route: 048
     Dates: start: 20201029, end: 20201102

REACTIONS (4)
  - Hallucination, auditory [None]
  - Hallucination, visual [None]
  - Encephalopathy [None]
  - Mental status changes [None]

NARRATIVE: CASE EVENT DATE: 20201102
